FAERS Safety Report 16108015 (Version 1)
Quarter: 2019Q1

REPORT INFORMATION
  Report Type: Spontaneous
  Country: CN (occurrence: CN)
  Receive Date: 20190322
  Receipt Date: 20190322
  Transmission Date: 20190418
  Serious: Yes (Death, Other)
  Sender: FDA-Public Use
  Company Number: CN-009507513-1903CHN010072

PATIENT

DRUGS (1)
  1. POSACONAZOLE [Suspect]
     Active Substance: POSACONAZOLE
     Indication: FUNGAL DISEASE CARRIER
     Dosage: 400 MILLIGRAM, BID
     Route: 048

REACTIONS (3)
  - Acute respiratory failure [Fatal]
  - Treatment failure [Fatal]
  - Pneumonia fungal [Fatal]
